FAERS Safety Report 19954272 (Version 1)
Quarter: 2021Q4

REPORT INFORMATION
  Report Type: Spontaneous
  Country: IT (occurrence: IT)
  Receive Date: 20211014
  Receipt Date: 20211014
  Transmission Date: 20220304
  Serious: Yes (Hospitalization)
  Sender: FDA-Public Use
  Company Number: 2021A760938

PATIENT
  Age: 83 Year
  Sex: Male

DRUGS (1)
  1. TAGRISSO [Suspect]
     Active Substance: OSIMERTINIB
     Indication: Lung adenocarcinoma recurrent
     Route: 048
     Dates: start: 20200403, end: 20200925

REACTIONS (3)
  - Chest pain [Recovering/Resolving]
  - Bronchopneumopathy [Recovering/Resolving]
  - Dyspnoea [Recovering/Resolving]

NARRATIVE: CASE EVENT DATE: 20210925
